FAERS Safety Report 20617844 (Version 1)
Quarter: 2022Q1

REPORT INFORMATION
  Report Type: Spontaneous
  Country: FR (occurrence: FR)
  Receive Date: 20220321
  Receipt Date: 20220321
  Transmission Date: 20220423
  Serious: Yes (Death)
  Sender: FDA-Public Use
  Company Number: FR-PFIZER INC-202200437293

PATIENT
  Age: 84 Year
  Sex: Male
  Weight: 51 kg

DRUGS (1)
  1. PAXLOVID [Suspect]
     Active Substance: NIRMATRELVIR\RITONAVIR
     Indication: COVID-19
     Dosage: 2 DF OF PF-07321332, 2X/DAY
     Route: 048
     Dates: start: 20220217, end: 20220221

REACTIONS (1)
  - Death [Fatal]
